FAERS Safety Report 7205561-5 (Version None)
Quarter: 2010Q4

REPORT INFORMATION
  Report Type: 
  Country: None (occurrence: None)
  Receive Date: 20101231
  Receipt Date: 20101228
  Transmission Date: 20110411
  Serious: Yes (Other)
  Sender: FDA-Public Use
  Company Number: IT-BRISTOL-MYERS SQUIBB COMPANY-15110893

PATIENT
  Age: 72 Year
  Sex: Female

DRUGS (4)
  1. COUMADIN [Suspect]
     Indication: CARDIAC VALVE PROSTHESIS USER
     Route: 048
     Dates: start: 20080722, end: 20101013
  2. METFORMIN HCL [Suspect]
     Indication: DIABETES MELLITUS
     Dosage: ORAL TABS, 2 UNITS/DAY
     Route: 048
  3. DIAMICRON [Suspect]
     Indication: DIABETES MELLITUS
     Dosage: ORAL TABS
     Route: 048
  4. SIRDALUD [Suspect]
     Indication: MUSCLE CONTRACTURE
     Dosage: ORAL TABS, 2 UNITS/DAY
     Route: 048

REACTIONS (3)
  - DIABETES MELLITUS [None]
  - INTERNATIONAL NORMALISED RATIO DECREASED [None]
  - MUSCLE CONTRACTURE [None]
